FAERS Safety Report 7884697-X (Version None)
Quarter: 2011Q4

REPORT INFORMATION
  Report Type: 
  Country: None (occurrence: None)
  Receive Date: 20111102
  Receipt Date: 20111014
  Transmission Date: 20120403
  Serious: No
  Sender: FDA-Public Use
  Company Number: US-B.I. PHARMACEUTICALS,INC./RIDGEFIELD-2011-BP-24218BP

PATIENT
  Sex: Male

DRUGS (5)
  1. SPIRIVA [Suspect]
     Indication: EMPHYSEMA
     Dosage: 18 MCG
     Route: 055
     Dates: start: 20111010
  2. PREDNISONE [Concomitant]
     Indication: RECTAL HAEMORRHAGE
  3. PREDNISONE [Concomitant]
     Indication: RECTAL ULCER HAEMORRHAGE
  4. SPIRIVA [Suspect]
     Indication: CHRONIC OBSTRUCTIVE PULMONARY DISEASE
  5. LORAZEPAM [Concomitant]
     Indication: FEELING OF RELAXATION

REACTIONS (2)
  - TONGUE DISORDER [None]
  - GLOSSODYNIA [None]
